FAERS Safety Report 8274453-5 (Version None)
Quarter: 2012Q2

REPORT INFORMATION
  Report Type: 
  Country: None (occurrence: None)
  Receive Date: 20120411
  Receipt Date: 20120327
  Transmission Date: 20120825
  Serious: Yes (Hospitalization)
  Sender: FDA-Public Use
  Company Number: JP-ROCHE-1049503

PATIENT
  Sex: Female

DRUGS (7)
  1. MINOCYCLINE HYDROCHLORIDE [Suspect]
     Indication: INFECTIVE TENOSYNOVITIS
     Dosage: DOSAGE IS UNCERTAIN.
     Route: 041
  2. PREDNISOLONE [Concomitant]
     Indication: RHEUMATOID ARTHRITIS
     Route: 048
  3. ACTEMRA [Suspect]
     Indication: RHEUMATOID ARTHRITIS
     Route: 041
     Dates: start: 20100402
  4. UNASYN [Suspect]
     Indication: INFECTIVE TENOSYNOVITIS
     Dosage: DOSAGE IS UNCERTAIN.
     Route: 048
  5. BREDININ [Concomitant]
     Indication: RHEUMATOID ARTHRITIS
     Route: 048
     Dates: start: 20070313
  6. SULFAMETHOXAZOLE AND TRIMETHOPRIM [Suspect]
     Indication: INFECTIVE TENOSYNOVITIS
     Dosage: DOSAGE IS UNCERTAIN.
     Route: 048
     Dates: start: 20110324, end: 20110405
  7. MEROPENEM [Suspect]
     Indication: INFECTIVE TENOSYNOVITIS
     Dosage: DOSAGE IS UNCERTAIN.
     Route: 041

REACTIONS (2)
  - INFECTIVE TENOSYNOVITIS [None]
  - TOXIC SKIN ERUPTION [None]
